FAERS Safety Report 17862001 (Version 1)
Quarter: 2020Q2

REPORT INFORMATION
  Report Type: Spontaneous
  Country: PL (occurrence: PL)
  Receive Date: 20200604
  Receipt Date: 20200604
  Transmission Date: 20200714
  Serious: Yes (Life-Threatening, Hospitalization, Other)
  Sender: FDA-Public Use
  Company Number: PL-BAUSCH-BL-2020-015659

PATIENT
  Age: 15 Year
  Sex: Male

DRUGS (11)
  1. CYTARABINE. [Suspect]
     Active Substance: CYTARABINE
     Indication: ACUTE LYMPHOCYTIC LEUKAEMIA
     Dosage: ALL IC-BFM 2009 PROTOCOL
     Route: 065
  2. CYCLOPHOSPHAMIDE. [Suspect]
     Active Substance: CYCLOPHOSPHAMIDE
     Indication: ACUTE LYMPHOCYTIC LEUKAEMIA
     Dosage: ALL IC-BFM 2009 PROTOCOL
     Route: 065
  3. DAUNORUBICIN [Suspect]
     Active Substance: DAUNORUBICIN
     Indication: ACUTE LYMPHOCYTIC LEUKAEMIA
     Dosage: ALL IC-BFM 2009 PROTOCOL
     Route: 065
  4. DOXORUBICIN [Suspect]
     Active Substance: DOXORUBICIN
     Indication: ACUTE LYMPHOCYTIC LEUKAEMIA
     Dosage: ALL IC-BFM 2009 PROTOCOL
     Route: 065
  5. COTRIMOXAZOLE [Concomitant]
     Active Substance: SULFAMETHOXAZOLE\TRIMETHOPRIM
     Indication: ANTIBIOTIC PROPHYLAXIS
  6. PHENOXYMETHYLPENICILLIN [Concomitant]
     Active Substance: PENICILLIN V
     Indication: ANTIBIOTIC PROPHYLAXIS
  7. L-ASPARAGINASE [Suspect]
     Active Substance: ASPARAGINASE
     Indication: ACUTE LYMPHOCYTIC LEUKAEMIA
     Dosage: ALL IC-BFM 2009 PROTOCOL
     Route: 065
  8. DEXAMETHASONE. [Suspect]
     Active Substance: DEXAMETHASONE
     Indication: ACUTE LYMPHOCYTIC LEUKAEMIA
     Dosage: ALL IC-BFM 2009 PROTOCOL
     Route: 065
  9. VINCRISTINE [Suspect]
     Active Substance: VINCRISTINE
     Indication: ACUTE LYMPHOCYTIC LEUKAEMIA
     Dosage: ALL IC-BFM 2009 PROTOCOL
     Route: 065
  10. 6-MERCAPTOPURINE [Suspect]
     Active Substance: MERCAPTOPURINE
     Indication: ACUTE LYMPHOCYTIC LEUKAEMIA
     Dosage: ALL IC-BFM 2009 PROTOCOL
     Route: 065
  11. METHOTREXATE. [Suspect]
     Active Substance: METHOTREXATE
     Indication: ACUTE LYMPHOCYTIC LEUKAEMIA
     Dosage: ALL IC-BFM 2009 PROTOCOL; CONSOLIDATION (3 OF 4 METHOTREXATE CYCLES)
     Route: 065

REACTIONS (10)
  - Skin toxicity [Recovered/Resolved]
  - Hepatotoxicity [Recovered/Resolved]
  - Toxoplasmosis [Recovered/Resolved]
  - Conjunctivitis bacterial [Recovered/Resolved]
  - Sepsis [Recovered/Resolved]
  - Device related infection [Recovered/Resolved]
  - Sinusitis bacterial [Recovered/Resolved]
  - Epstein-Barr virus infection [Recovered/Resolved]
  - Steroid diabetes [Recovered/Resolved]
  - Inappropriate antidiuretic hormone secretion [Recovered/Resolved]
